FAERS Safety Report 10066072 (Version 1)
Quarter: 2014Q2

REPORT INFORMATION
  Report Type: Spontaneous
  Country: IT (occurrence: IT)
  Receive Date: 20140408
  Receipt Date: 20140408
  Transmission Date: 20141212
  Serious: Yes (Other)
  Sender: FDA-Public Use
  Company Number: PHHY2014IT038916

PATIENT
  Age: 24 Year
  Sex: Female

DRUGS (2)
  1. LORAZEPAM [Suspect]
     Indication: PERSONALITY DISORDER
     Dosage: 1 MG, QD
     Route: 048
     Dates: start: 20140121, end: 20140121
  2. ZOLOFT [Suspect]
     Indication: PERSONALITY DISORDER
     Dosage: 50 MG, QD
     Route: 048
     Dates: start: 20140121, end: 20140121

REACTIONS (3)
  - Electrocardiogram abnormal [Recovering/Resolving]
  - Bradyphrenia [Recovering/Resolving]
  - Drug abuse [Recovering/Resolving]
